FAERS Safety Report 14873555 (Version 1)
Quarter: 2018Q2

REPORT INFORMATION
  Report Type: Spontaneous
  Country: US (occurrence: US)
  Receive Date: 20180424
  Receipt Date: 20180424
  Transmission Date: 20180711
  Serious: No
  Sender: FDA-Public Use
  Company Number: None

PATIENT
  Sex: Female

DRUGS (1)
  1. ZEJULA [Suspect]
     Active Substance: NIRAPARIB
     Indication: OVARIAN CANCER

REACTIONS (11)
  - Invasive ductal breast carcinoma [None]
  - Lymphoedema [None]
  - Dyspnoea [None]
  - Feeling abnormal [None]
  - Stress [None]
  - Malaise [None]
  - Depression [None]
  - Fatigue [None]
  - Weight increased [None]
  - Red blood cell count decreased [None]
  - Asthenia [None]
